FAERS Safety Report 8607235 (Version 2)
Quarter: 2014Q1

REPORT INFORMATION
  Report Type: Spontaneous
  Country: US (occurrence: US)
  Receive Date: 20120611
  Receipt Date: 20140128
  Transmission Date: 20141002
  Serious: Yes (Hospitalization, Disabling)
  Sender: FDA-Public Use
  Company Number: US-ASTRAZENECA-2012SE35755

PATIENT
  Age: 62 Year
  Sex: Male

DRUGS (8)
  1. NEXIUM [Suspect]
     Indication: GASTROOESOPHAGEAL REFLUX DISEASE
     Route: 048
     Dates: start: 20080114, end: 201001
  2. LEVOTHYROXINE [Concomitant]
     Indication: THYROID DISORDER
  3. METOPROLOL [Concomitant]
     Indication: CARDIAC DISORDER
  4. ASPIRIN [Concomitant]
  5. CLOPIDOGREL [Concomitant]
     Indication: CARDIAC DISORDER
     Dosage: GENERIC
  6. LISINOPRIL [Concomitant]
     Indication: BLOOD DISORDER
  7. LISINOPRIL [Concomitant]
     Indication: CARDIAC DISORDER
  8. SIMVASTATIN [Concomitant]
     Indication: HYPERTENSION

REACTIONS (5)
  - Neck injury [Unknown]
  - Peripheral arterial occlusive disease [Unknown]
  - Osteoporosis [Unknown]
  - Multiple fractures [Unknown]
  - Polyarthritis [Unknown]
